FAERS Safety Report 6266411-7 (Version None)
Quarter: 2009Q3

REPORT INFORMATION
  Report Type: 
  Country: None (occurrence: None)
  Receive Date: 20090709
  Receipt Date: 20090629
  Transmission Date: 20100115
  Serious: Yes (Hospitalization)
  Sender: FDA-Public Use
  Company Number: FR-2009-1414

PATIENT
  Age: 10 Year
  Sex: Female

DRUGS (9)
  1. NAVELBINE [Suspect]
     Indication: EWING'S SARCOMA
     Dosage: 25 MG/M2 IV
     Route: 042
     Dates: start: 20090415
  2. NAVELBINE [Suspect]
     Indication: EWING'S SARCOMA
     Dosage: 25 MG/M2 IV
     Route: 042
     Dates: start: 20090422
  3. NAVELBINE [Suspect]
     Indication: EWING'S SARCOMA
     Dosage: 25 MG/M2 IV
     Route: 042
     Dates: start: 20090429
  4. NAVELBINE [Suspect]
     Indication: EWING'S SARCOMA
     Dosage: 25 MG/M2 IV
     Route: 042
     Dates: start: 20090513
  5. NAVELBINE [Suspect]
     Indication: EWING'S SARCOMA
     Dosage: 25 MG/M2 IV
     Route: 042
     Dates: start: 20090520
  6. ENDOXAN. MFR: NOT SPECIFIED [Suspect]
     Indication: EWING'S SARCOMA
     Dosage: 25 MGM2
     Dates: start: 20090415
  7. ENDOXAN. MFR: NOT SPECIFIED [Suspect]
     Indication: EWING'S SARCOMA
     Dosage: 25 MG/M2
     Dates: start: 20090422
  8. ENDOXAN. MFR: NOT SPECIFIED [Suspect]
     Indication: EWING'S SARCOMA
     Dosage: 25MG/M2
     Dates: start: 20090429
  9. ENDOXAN. MFR: NOT SPECIFIED [Suspect]
     Indication: EWING'S SARCOMA
     Dosage: 25 MG/M2
     Dates: start: 20090513

REACTIONS (3)
  - ABDOMINAL PAIN [None]
  - ASTHENIA [None]
  - PYREXIA [None]
